FAERS Safety Report 11324218 (Version 3)
Quarter: 2015Q3

REPORT INFORMATION
  Report Type: Report from Study
  Country: ES (occurrence: ES)
  Receive Date: 20150730
  Receipt Date: 20150817
  Transmission Date: 20151125
  Serious: Yes (Hospitalization)
  Sender: FDA-Public Use
  Company Number: ES-PFIZER INC-2015243925

PATIENT
  Age: 46 Year
  Sex: Female
  Weight: 62 kg

DRUGS (3)
  1. IBRANCE [Suspect]
     Active Substance: PALBOCICLIB
     Indication: BREAST CANCER
     Dosage: 125 MG, DAILY
     Route: 048
     Dates: start: 20150609, end: 20150701
  2. FASLODEX [Concomitant]
     Active Substance: FULVESTRANT
     Indication: BREAST CANCER
     Dosage: 500 MG, CYCLIC (EVERY 15 DAYS)
     Route: 058
     Dates: start: 20110614
  3. PREDNISONE. [Concomitant]
     Active Substance: PREDNISONE
     Indication: BREAST CANCER
     Dosage: 20 MG, DAILY
     Route: 048
     Dates: start: 20140830

REACTIONS (3)
  - Pyrexia [Recovered/Resolved with Sequelae]
  - Pseudomonas test positive [Unknown]
  - Headache [Unknown]

NARRATIVE: CASE EVENT DATE: 201507
